FAERS Safety Report 19993042 (Version 1)
Quarter: 2021Q4

REPORT INFORMATION
  Report Type: Spontaneous
  Country: US (occurrence: US)
  Receive Date: 20211025
  Receipt Date: 20211025
  Transmission Date: 20220303
  Serious: No
  Sender: FDA-Public Use
  Company Number: US-ABBVIE-21K-163-3917901-00

PATIENT
  Sex: Female

DRUGS (1)
  1. LUPRON DEPOT [Suspect]
     Active Substance: LEUPROLIDE ACETATE
     Indication: Product used for unknown indication
     Route: 065

REACTIONS (5)
  - Intervertebral disc degeneration [Unknown]
  - Bone loss [Unknown]
  - Hypomenorrhoea [Unknown]
  - Pseudoprecocious puberty [Recovered/Resolved]
  - Arthralgia [Unknown]
